FAERS Safety Report 8540746-7 (Version None)
Quarter: 2012Q3

REPORT INFORMATION
  Report Type: 
  Country: None (occurrence: None)
  Receive Date: 20120726
  Receipt Date: 20120720
  Transmission Date: 20120928
  Serious: Yes (Hospitalization)
  Sender: FDA-Public Use
  Company Number: FR-EISAI INC-E2020-11084-SPO-FR

PATIENT
  Sex: Female

DRUGS (7)
  1. ZOLPIDEM [Suspect]
     Dosage: UNKNOWN
     Route: 048
  2. PULMICORT [Suspect]
     Indication: ASTHMA
     Dosage: UNKNOWN
     Route: 048
     Dates: start: 20120401
  3. ATORVASTATIN [Suspect]
     Dosage: UNKNOWN
     Route: 048
  4. ATHYMIL [Suspect]
     Dosage: UNKNOWN
     Route: 048
  5. ARICEPT [Suspect]
     Indication: DEMENTIA ALZHEIMER'S TYPE
     Dosage: UNKNOWN
     Route: 048
     Dates: start: 20100201
  6. ALPRAZOLAM [Suspect]
     Dosage: UNKNOWN
     Route: 048
  7. PERINDOPRIL ERBUMINE [Suspect]
     Dosage: UNKNOWN
     Route: 048

REACTIONS (1)
  - ELECTROCARDIOGRAM QT PROLONGED [None]
